FAERS Safety Report 6177169-4 (Version None)
Quarter: 2009Q2

REPORT INFORMATION
  Report Type: 
  Country: None (occurrence: None)
  Receive Date: 20090504
  Receipt Date: 20090429
  Transmission Date: 20091009
  Serious: Yes (Other)
  Sender: FDA-Public Use
  Company Number: FR-BRISTOL-MYERS SQUIBB COMPANY-14605174

PATIENT
  Sex: Female

DRUGS (9)
  1. REYATAZ [Suspect]
     Indication: HIV INFECTION
     Dosage: 1 CAPSULE
     Route: 048
     Dates: start: 20080516
  2. VIDEX EC [Suspect]
     Indication: HIV INFECTION
     Dosage: 1 ENTERIC-COATED CAPSULE
     Dates: start: 20080516
  3. ZERIT [Suspect]
     Indication: HIV INFECTION
     Dosage: 1 TABLET
     Dates: start: 20080516
  4. EPIVER [Suspect]
     Indication: HIV INFECTION
     Dosage: 1 DOSAGE FORM = 1 TAB
     Dates: start: 20080516
  5. EMTRIVA [Suspect]
     Indication: HIV INFECTION
     Dosage: 1 DOSAGE FORM = 1 CAP
     Dates: start: 20080516
  6. KALETRA [Suspect]
     Indication: HIV INFECTION
     Dosage: 1 DOSAGE FORM = 3 TABS
     Dates: start: 20080516
  7. NORVIR [Suspect]
     Indication: HIV INFECTION
     Dosage: 4 TABS
     Dates: start: 20080516
  8. RETROVIR [Suspect]
     Indication: HIV INFECTION
     Dosage: 1 TAB
     Dates: start: 20080516
  9. VIREAD [Suspect]
     Indication: HIV INFECTION
     Dosage: 1 TAB
     Dates: start: 20080516

REACTIONS (5)
  - DIARRHOEA [None]
  - MEDICATION ERROR [None]
  - NAUSEA [None]
  - VERTIGO [None]
  - VOMITING [None]
